FAERS Safety Report 8620163-1 (Version None)
Quarter: 2012Q3

REPORT INFORMATION
  Report Type: 
  Country: None (occurrence: None)
  Receive Date: 20120824
  Receipt Date: 20120821
  Transmission Date: 20120928
  Serious: Yes (Other)
  Sender: FDA-Public Use
  Company Number: US-PFIZER INC-2012205194

PATIENT
  Age: 46 Year
  Sex: Female
  Weight: 104.8 kg

DRUGS (4)
  1. ADVIL LIQUI-GELS [Suspect]
     Indication: HEADACHE
     Dosage: 200 MG, AS NEEDED
     Route: 048
     Dates: start: 20120501, end: 20120814
  2. ADVIL [Suspect]
     Dosage: UNK
  3. NORVASC [Concomitant]
     Indication: HYPERTENSION
     Dosage: UNK
  4. MICROGESTIN 1.5/30 [Concomitant]
     Dosage: UNK

REACTIONS (7)
  - DYSPNOEA [None]
  - ASTHMA [None]
  - DYSPHONIA [None]
  - PULMONARY CONGESTION [None]
  - INCREASED UPPER AIRWAY SECRETION [None]
  - WHEEZING [None]
  - COUGH [None]
